FAERS Safety Report 4480170-X (Version None)
Quarter: 2004Q4

REPORT INFORMATION
  Report Type: 
  Country: None (occurrence: None)
  Receive Date: 20041018
  Receipt Date: 20040928
  Transmission Date: 20050328
  Serious: No
  Sender: FDA-Public Use
  Company Number: 04H-062-0275001-00

PATIENT

DRUGS (6)
  1. LEUCOVORIN CALCIUM [Suspect]
     Indication: CHEMOTHERAPY
     Dosage: 300 MG/M2, WEEKLY FOR 4 WEEKS, INTRAVENOUS/DAYS 1 AND 2
     Route: 042
  2. MITOMYCIN [Suspect]
     Indication: CHEMOTHERAPY
     Dosage: 8 GRAM/M2, WEEKLY FOR 4 WEEKS,INTRAVENOUS/DAY 1
     Route: 042
  3. FLUOROURACIL [Suspect]
     Indication: CHEMOTHERAPY
     Dosage: 750 MG/M2, WEEKLY FOR 4 WEEKS, INTRAVENOUS/DAYS 1 AND 2
     Route: 042
  4. PREDNISONE [Concomitant]
  5. DEXAMETHASONE [Concomitant]
  6. ONDANSETRON [Concomitant]

REACTIONS (2)
  - LEUKOPENIA [None]
  - PYREXIA [None]
